FAERS Safety Report 10354287 (Version 1)
Quarter: 2014Q3

REPORT INFORMATION
  Report Type: Spontaneous
  Country: GB (occurrence: None)
  Receive Date: 20140729
  Receipt Date: 20140729
  Transmission Date: 20150326
  Serious: Yes (Other)
  Sender: FDA-Public Use
  Company Number: AUR-APL-2014-07840

PATIENT
  Sex: Female

DRUGS (2)
  1. PEGYLATED INTERFERON ALFA-2A [Suspect]
     Active Substance: PEGINTERFERON ALFA-2A
     Indication: PRODUCT USED FOR UNKNOWN INDICATION
     Dates: end: 200701
  2. RIBAVIRIN. [Suspect]
     Active Substance: RIBAVIRIN
     Indication: PRODUCT USED FOR UNKNOWN INDICATION
     Dates: end: 200706

REACTIONS (3)
  - Pregnancy [None]
  - Maternal exposure during pregnancy [None]
  - Abortion induced [None]
